FAERS Safety Report 5096649-6 (Version None)
Quarter: 2006Q3

REPORT INFORMATION
  Report Type: 
  Country: None (occurrence: None)
  Receive Date: 20060830
  Receipt Date: 20060824
  Transmission Date: 20061208
  Serious: Yes (Disabling, Other)
  Sender: FDA-Public Use
  Company Number: HQWYE946124AUG06

PATIENT
  Age: 72 Year

DRUGS (7)
  1. AMIODARONE (AMIODARONE) [Suspect]
     Indication: ATRIAL FIBRILLATION
     Dosage: 100 MG TABLET
     Route: 048
     Dates: start: 20050905, end: 20051125
  2. PERINDOPRIL ERBUMINE [Suspect]
     Indication: HYPERTENSION
     Dosage: 4 MG
     Route: 048
     Dates: start: 20050905, end: 20050925
  3. ASPIRIN [Concomitant]
  4. FUROSEMIDE [Concomitant]
  5. LERCANIDIPINE [Concomitant]
  6. SIMVASTATIN [Concomitant]
  7. WARFARIN SODIUM [Concomitant]

REACTIONS (2)
  - PERIPHERAL ISCHAEMIA [None]
  - VASCULITIS [None]
